FAERS Safety Report 11809275 (Version 1)
Quarter: 2015Q4

REPORT INFORMATION
  Report Type: Report from Study
  Country: US (occurrence: US)
  Receive Date: 20151207
  Receipt Date: 20151207
  Transmission Date: 20160305
  Serious: Yes (Hospitalization, Other)
  Sender: FDA-Public Use
  Company Number: US-GILEAD-2015-0186696

PATIENT
  Age: 49 Year
  Sex: Female

DRUGS (12)
  1. TRUVADA [Suspect]
     Active Substance: EMTRICITABINE\TENOFOVIR DISOPROXIL FUMARATE
     Indication: PRODUCT USED FOR UNKNOWN INDICATION
     Route: 065
  2. NIFEDIAC CC [Concomitant]
     Active Substance: NIFEDIPINE
  3. ADCIRCA [Concomitant]
     Active Substance: TADALAFIL
  4. ASPIRIN                            /00002701/ [Concomitant]
     Active Substance: ASPIRIN
  5. PRILOSEC [Concomitant]
     Active Substance: OMEPRAZOLE MAGNESIUM
  6. AMBRISENTAN [Suspect]
     Active Substance: AMBRISENTAN
     Indication: PULMONARY ARTERIAL HYPERTENSION
     Dosage: 5 MG, QD
     Route: 065
     Dates: start: 20130406
  7. ORENITRAM [Concomitant]
     Active Substance: TREPROSTINIL
  8. XANAX [Concomitant]
     Active Substance: ALPRAZOLAM
  9. CARVEDILOL. [Concomitant]
     Active Substance: CARVEDILOL
  10. AMITRIPTYLINE [Concomitant]
     Active Substance: AMITRIPTYLINE
  11. TIVICAY [Concomitant]
     Active Substance: DOLUTEGRAVIR SODIUM
  12. TRIAMTERENE AND HYDROCHLOROTHIAZID [Concomitant]
     Active Substance: HYDROCHLOROTHIAZIDE\TRIAMTERENE

REACTIONS (1)
  - Hysterectomy [Unknown]

NARRATIVE: CASE EVENT DATE: 20151130
